FAERS Safety Report 14262707 (Version 1)
Quarter: 2017Q4

REPORT INFORMATION
  Report Type: Spontaneous
  Country: JP (occurrence: JP)
  Receive Date: 20171208
  Receipt Date: 20171208
  Transmission Date: 20180321
  Serious: Yes (Other)
  Sender: FDA-Public Use
  Company Number: JP-GLAXOSMITHKLINE-JP2017JPN145545

PATIENT
  Sex: Female
  Weight: 50 kg

DRUGS (1)
  1. SERETIDE [Suspect]
     Active Substance: FLUTICASONE PROPIONATE\SALMETEROL XINAFOATE
     Indication: ASTHMA
     Dosage: 500 ?G, BID
     Route: 055

REACTIONS (5)
  - Adrenal insufficiency [Recovering/Resolving]
  - Cortisol decreased [Recovering/Resolving]
  - Product use issue [Unknown]
  - Blood corticotrophin decreased [Recovering/Resolving]
  - Oedema [Unknown]
